FAERS Safety Report 16067563 (Version 3)
Quarter: 2019Q2

REPORT INFORMATION
  Report Type: Spontaneous
  Country: US (occurrence: US)
  Receive Date: 20190313
  Receipt Date: 20190529
  Transmission Date: 20190711
  Serious: Yes (Hospitalization, Other)
  Sender: FDA-Public Use
  Company Number: US-ELI_LILLY_AND_COMPANY-US201903003289

PATIENT
  Sex: Male

DRUGS (2)
  1. HUMALOG [Suspect]
     Active Substance: INSULIN LISPRO
     Indication: TYPE 1 DIABETES MELLITUS
     Dosage: UNK, UNKNOWN
     Route: 058
     Dates: start: 2009, end: 2015
  2. HUMALOG [Suspect]
     Active Substance: INSULIN LISPRO
     Dosage: UNK, UNKNOWN
     Route: 058
     Dates: start: 201805

REACTIONS (8)
  - Diabetes mellitus inadequate control [Recovering/Resolving]
  - Transient ischaemic attack [Recovering/Resolving]
  - Amnesia [Unknown]
  - Renal disorder [Unknown]
  - Blood glucose abnormal [Unknown]
  - Musculoskeletal discomfort [Unknown]
  - Visual impairment [Recovering/Resolving]
  - Balance disorder [Unknown]
